FAERS Safety Report 19660115 (Version 2)
Quarter: 2022Q1

REPORT INFORMATION
  Report Type: Spontaneous
  Country: US (occurrence: US)
  Receive Date: 20210805
  Receipt Date: 20220121
  Transmission Date: 20220423
  Serious: Yes (Other)
  Sender: FDA-Public Use
  Company Number: US-GILEAD-2021-0542448

PATIENT
  Age: 54 Year
  Sex: Male

DRUGS (27)
  1. ATRIPLA [Suspect]
     Active Substance: EFAVIRENZ\EMTRICITABINE\TENOFOVIR DISOPROXIL FUMARATE
     Indication: HIV infection
     Dosage: UNK
     Route: 048
     Dates: start: 2006
  2. ATRIPLA [Suspect]
     Active Substance: EFAVIRENZ\EMTRICITABINE\TENOFOVIR DISOPROXIL FUMARATE
     Dosage: UNK
     Route: 048
     Dates: start: 20090519, end: 201204
  3. COMPLERA [Suspect]
     Active Substance: EMTRICITABINE\RILPIVIRINE HYDROCHLORIDE\TENOFOVIR DISOPROXIL FUMARATE
     Indication: HIV infection
     Dosage: UNK
     Route: 048
     Dates: start: 201204, end: 201803
  4. BIKTARVY [Concomitant]
     Active Substance: BICTEGRAVIR SODIUM\EMTRICITABINE\TENOFOVIR ALAFENAMIDE FUMARATE
  5. ODEFSEY [Concomitant]
     Active Substance: EMTRICITABINE\RILPIVIRINE HYDROCHLORIDE\TENOFOVIR ALAFENAMIDE FUMARATE
  6. SUSTIVA [Concomitant]
     Active Substance: EFAVIRENZ
  7. TIVICAY [Concomitant]
     Active Substance: DOLUTEGRAVIR SODIUM
  8. ZIAGEN [Concomitant]
     Active Substance: ABACAVIR SULFATE
  9. ALENDRONATE [Concomitant]
     Active Substance: ALENDRONATE SODIUM
  10. ANDRODERM [Concomitant]
     Active Substance: TESTOSTERONE
  11. ATOVAQUONE [Concomitant]
     Active Substance: ATOVAQUONE
  12. ROWEEPRA [Concomitant]
     Active Substance: LEVETIRACETAM
  13. DIAZEPAM [Concomitant]
     Active Substance: DIAZEPAM
  14. DRONABINOL [Concomitant]
     Active Substance: DRONABINOL
  15. DULOXETINE [Concomitant]
     Active Substance: DULOXETINE
  16. GABAPENTIN [Concomitant]
     Active Substance: GABAPENTIN
  17. LEVETIRACETAM [Concomitant]
     Active Substance: LEVETIRACETAM
  18. MEGESTROL [Concomitant]
     Active Substance: MEGESTROL
  19. MELOXICAM [Concomitant]
     Active Substance: MELOXICAM
  20. METHADONE [Concomitant]
     Active Substance: METHADONE HYDROCHLORIDE
  21. MORPHINE [Concomitant]
     Active Substance: MORPHINE
  22. NAPROXEN [Concomitant]
     Active Substance: NAPROXEN
  23. OXYCODONE [Concomitant]
     Active Substance: OXYCODONE
  24. PREDNISONE [Concomitant]
     Active Substance: PREDNISONE
  25. SEROSTIM [Concomitant]
     Active Substance: SOMATROPIN
  26. TESTOSTERONE [Concomitant]
     Active Substance: TESTOSTERONE
  27. TRAZODONE [Concomitant]
     Active Substance: TRAZODONE HYDROCHLORIDE

REACTIONS (8)
  - Osteoporosis [Not Recovered/Not Resolved]
  - Multiple fractures [Not Recovered/Not Resolved]
  - Bone density decreased [Unknown]
  - Emotional distress [Not Recovered/Not Resolved]
  - Anhedonia [Not Recovered/Not Resolved]
  - Anxiety [Not Recovered/Not Resolved]
  - Pain [Not Recovered/Not Resolved]
  - Loss of personal independence in daily activities [Not Recovered/Not Resolved]

NARRATIVE: CASE EVENT DATE: 20120401
